FAERS Safety Report 7269272-2 (Version None)
Quarter: 2011Q1

REPORT INFORMATION
  Report Type: 
  Country: None (occurrence: None)
  Receive Date: 20110202
  Receipt Date: 20110125
  Transmission Date: 20110831
  Serious: Yes (Hospitalization)
  Sender: FDA-Public Use
  Company Number: CH-JNJFOC-20110106558

PATIENT
  Age: 91 Year
  Sex: Male

DRUGS (10)
  1. LISINOPRIL [Concomitant]
     Route: 048
  2. TRAUMANASE [Concomitant]
     Route: 048
  3. TRIMIPRAMINE [Concomitant]
     Route: 048
  4. FENTANYL [Suspect]
     Indication: PRODUCT USED FOR UNKNOWN INDICATION
     Route: 062
  5. SACCHAROMYCES BOULARDII [Concomitant]
     Route: 048
  6. OMEPRAZOLE [Concomitant]
     Route: 048
  7. LISINOPRIL [Concomitant]
     Route: 048
  8. DAFALGAN [Concomitant]
     Route: 048
  9. TORASEMID [Concomitant]
     Route: 048
  10. NOVALGIN [Concomitant]
     Route: 048

REACTIONS (2)
  - CIRCADIAN RHYTHM SLEEP DISORDER [None]
  - DELIRIUM [None]
